FAERS Safety Report 5989744-8 (Version None)
Quarter: 2008Q4

REPORT INFORMATION
  Report Type: 
  Country: None (occurrence: None)
  Receive Date: 20081209
  Receipt Date: 20081110
  Transmission Date: 20090506
  Serious: Yes (Other)
  Sender: FDA-Public Use
  Company Number: 230001L08AUS

PATIENT
  Age: 38 Year
  Sex: Female

DRUGS (1)
  1. REBIF [Suspect]
     Indication: MULTIPLE SCLEROSIS
     Dosage: 2 IN 1 WEEKS; 3 IN 1 WEEKS
     Dates: start: 20030701

REACTIONS (5)
  - MUSCULOSKELETAL STIFFNESS [None]
  - PITTING OEDEMA [None]
  - SCLERODERMA [None]
  - SWELLING [None]
  - SYSTEMIC SCLEROSIS [None]
